FAERS Safety Report 7322286 (Version 4)
Quarter: 2013Q4

REPORT INFORMATION
  Report Type: Spontaneous
  Country: US (occurrence: US)
  Receive Date: 20100317
  Receipt Date: 20131227
  Transmission Date: 20140711
  Serious: Yes (Hospitalization, Other)
  Sender: FDA-Public Use
  Company Number: US-BAYER-201016618NA

PATIENT
  Age: 27 Year
  Sex: Female
  Weight: 63.64 kg

DRUGS (15)
  1. YAZ [Suspect]
     Indication: PREMENSTRUAL SYNDROME
     Dosage: UNK
     Route: 048
     Dates: start: 200801, end: 200803
  2. YAZ [Suspect]
     Indication: ACNE
  3. GEODON [Concomitant]
     Indication: PRODUCT USED FOR UNKNOWN INDICATION
     Dates: start: 2004
  4. LUNESTA [Concomitant]
     Dates: start: 2003, end: 20090615
  5. PROZAC [Concomitant]
     Dates: start: 2003, end: 20070615
  6. OMEPRAZOLE [Concomitant]
     Indication: GASTROOESOPHAGEAL REFLUX DISEASE
  7. COLACE [Concomitant]
     Indication: CONSTIPATION
  8. VALIUM [Concomitant]
     Dosage: 10 MG, QD
     Dates: start: 2008
  9. CLOTRIMAZOLE W/BETAMETHASONE DIPROPIONAT [Concomitant]
     Dosage: UNK
     Dates: start: 20080108
  10. DIAZEPAM [Concomitant]
     Dosage: 2 MG, UNK
     Dates: start: 20080111
  11. CIPROFLOXACIN HCL [Concomitant]
     Dosage: 500 MG, UNK
     Dates: start: 20080121
  12. METHYLPREDNISOLONE [Concomitant]
     Dosage: 4 MG, UNK
     Dates: start: 20080130
  13. CLARITHROMYCIN [Concomitant]
     Dosage: 500 MG, UNK
     Dates: start: 20080130
  14. ALBUTEROL [Concomitant]
     Dosage: 90 MCG
     Dates: start: 20080130
  15. CHANTIX [Concomitant]
     Dosage: UNK
     Dates: start: 20080205

REACTIONS (13)
  - Cholecystitis chronic [Recovered/Resolved]
  - Cholecystitis chronic [None]
  - Abdominal pain [Recovered/Resolved]
  - Abdominal pain upper [Recovered/Resolved]
  - Nausea [Recovered/Resolved]
  - Vomiting [Recovered/Resolved]
  - Abdominal pain upper [Recovered/Resolved]
  - Primary immunodeficiency syndrome [Not Recovered/Not Resolved]
  - Vitamin B12 deficiency [Not Recovered/Not Resolved]
  - Pain in extremity [None]
  - Hypersensitivity [None]
  - Emotional disorder [None]
  - Hyperphagia [None]
